FAERS Safety Report 13712111 (Version 1)
Quarter: 2017Q3

REPORT INFORMATION
  Report Type: Spontaneous
  Country: US (occurrence: US)
  Receive Date: 20170703
  Receipt Date: 20170703
  Transmission Date: 20171127
  Serious: Yes (Hospitalization)
  Sender: FDA-Public Use
  Company Number: US-JNJFOC-20170603258

PATIENT
  Age: 14 Year
  Sex: Female
  Weight: 44 kg

DRUGS (2)
  1. TOPAMAX [Suspect]
     Active Substance: TOPIRAMATE
     Indication: NEW DAILY PERSISTENT HEADACHE
     Route: 048
     Dates: end: 201703
  2. TOPAMAX [Suspect]
     Active Substance: TOPIRAMATE
     Indication: NEW DAILY PERSISTENT HEADACHE
     Dosage: ^LOWEST DOSE^
     Route: 048
     Dates: start: 201612

REACTIONS (5)
  - Decreased appetite [Not Recovered/Not Resolved]
  - Eating disorder [Not Recovered/Not Resolved]
  - Off label use [Unknown]
  - Weight decreased [Recovering/Resolving]
  - Product use in unapproved indication [Unknown]

NARRATIVE: CASE EVENT DATE: 201612
